FAERS Safety Report 12290420 (Version 1)
Quarter: 2016Q2

REPORT INFORMATION
  Report Type: Spontaneous
  Country: CN (occurrence: CN)
  Receive Date: 20160421
  Receipt Date: 20160421
  Transmission Date: 20160815
  Serious: Yes (Hospitalization)
  Sender: FDA-Public Use
  Company Number: CN-SA-2016SA074694

PATIENT
  Age: 33 Year
  Sex: Female
  Weight: 57 kg

DRUGS (5)
  1. PACLITAXEL. [Concomitant]
     Active Substance: PACLITAXEL
  2. GLUCOSE [Concomitant]
     Active Substance: DEXTROSE
     Dosage: 5%?OVER 3 HOURS
     Route: 041
     Dates: start: 20151020
  3. CARBOPLATIN. [Concomitant]
     Active Substance: CARBOPLATIN
     Route: 041
     Dates: start: 20151020
  4. SODIUM CHLORIDE. [Concomitant]
     Active Substance: SODIUM CHLORIDE
     Dosage: 0.9%?1 HOUR AFTER DOCETAXEL
     Route: 041
     Dates: start: 20151020
  5. TAXOTERE [Suspect]
     Active Substance: DOCETAXEL
     Indication: NEOPLASM
     Route: 041
     Dates: start: 20151020, end: 20151020

REACTIONS (1)
  - Bone marrow failure [Recovering/Resolving]

NARRATIVE: CASE EVENT DATE: 20151027
